FAERS Safety Report 8246196-5 (Version None)
Quarter: 2012Q1

REPORT INFORMATION
  Report Type: 
  Country: None (occurrence: None)
  Receive Date: 20120328
  Receipt Date: 20120328
  Transmission Date: 20120608
  Serious: Yes (Hospitalization)
  Sender: FDA-Public Use
  Company Number: None

PATIENT
  Age: 47 Year
  Sex: Female
  Weight: 81.6475 kg

DRUGS (5)
  1. FUROSEMIDE [Concomitant]
  2. HYDROCODONE BITARTRATE AND ACETAMINOPHEN [Concomitant]
  3. CYMBALTA [Suspect]
     Indication: PAIN
     Dosage: 30MG. DAILY PO NOV. 2 - NOV. 13, 2011
     Route: 048
  4. CITALOPRAM HYDROBROMIDE [Concomitant]
  5. ESTRADIOL [Concomitant]

REACTIONS (3)
  - HYPOAESTHESIA [None]
  - BONE PAIN [None]
  - PARAESTHESIA [None]
